FAERS Safety Report 23542536 (Version 2)
Quarter: 2024Q2

REPORT INFORMATION
  Report Type: Spontaneous
  Country: US (occurrence: US)
  Receive Date: 20240220
  Receipt Date: 20240402
  Transmission Date: 20240715
  Serious: Yes (Hospitalization, Other)
  Sender: FDA-Public Use
  Company Number: US-ALEMBIC PHARMACUETICALS LIMITED-2024SCAL000092

PATIENT

DRUGS (4)
  1. LEFLUNOMIDE [Interacting]
     Active Substance: LEFLUNOMIDE
     Indication: Polyomavirus viraemia
     Dosage: 20 MG, QD
     Route: 065
  2. CYCLOSPORINE [Interacting]
     Active Substance: CYCLOSPORINE
     Indication: Renal transplant
     Dosage: 150 MG, BID
     Route: 065
  3. CYCLOSPORINE [Interacting]
     Active Substance: CYCLOSPORINE
     Dosage: 75 MG, BID
     Route: 065
  4. ROSUVASTATIN [Interacting]
     Active Substance: ROSUVASTATIN
     Indication: Renal transplant
     Dosage: 40 MG, QD
     Route: 065

REACTIONS (8)
  - Rhabdomyolysis [Unknown]
  - Myopathy [Unknown]
  - Myoglobin blood increased [Recovering/Resolving]
  - Acute kidney injury [Unknown]
  - Haemoglobin decreased [Unknown]
  - Blood creatine phosphokinase increased [Recovering/Resolving]
  - Blood creatinine increased [Recovering/Resolving]
  - Drug interaction [Unknown]
